FAERS Safety Report 18523691 (Version 2)
Quarter: 2020Q4

REPORT INFORMATION
  Report Type: Spontaneous
  Country: US (occurrence: US)
  Receive Date: 20201119
  Receipt Date: 20201208
  Transmission Date: 20210114
  Serious: Yes (Other)
  Sender: FDA-Public Use
  Company Number: US-009507513-2011USA009272

PATIENT
  Sex: Female

DRUGS (2)
  1. NEXPLANON [Suspect]
     Active Substance: ETONOGESTREL
     Dosage: 1 ROD IMPLANT
     Route: 059
     Dates: start: 20201104
  2. NEXPLANON [Suspect]
     Active Substance: ETONOGESTREL
     Dosage: 1 ROD IMPLANT, LEFT UPPER ARM
     Route: 059
     Dates: start: 201704, end: 20201104

REACTIONS (6)
  - Device breakage [Recovered/Resolved]
  - Device dislocation [Recovered/Resolved]
  - No adverse event [Unknown]
  - Device issue [Recovered/Resolved]
  - Complication of device removal [Recovered/Resolved]
  - Incorrect product administration duration [Unknown]

NARRATIVE: CASE EVENT DATE: 202004
